FAERS Safety Report 24891617 (Version 1)
Quarter: 2025Q1

REPORT INFORMATION
  Report Type: Spontaneous
  Country: CA (occurrence: CA)
  Receive Date: 20250127
  Receipt Date: 20250127
  Transmission Date: 20250409
  Serious: Yes (Other)
  Sender: SANDOZ
  Company Number: CA-MLMSERVICE-20160223-0182018-2

PATIENT
  Age: 58 Year
  Sex: Female

DRUGS (24)
  1. DIPRIVAN [Suspect]
     Active Substance: PROPOFOL
     Indication: Therapeutic procedure
     Dosage: 150 MG, BID
     Route: 042
  2. DIPRIVAN [Suspect]
     Active Substance: PROPOFOL
     Indication: Status epilepticus
     Route: 065
  3. DIPRIVAN [Suspect]
     Active Substance: PROPOFOL
     Route: 065
  4. ISOFLURANE [Suspect]
     Active Substance: ISOFLURANE
     Indication: Appendicitis
     Route: 055
  5. ISOFLURANE [Suspect]
     Active Substance: ISOFLURANE
     Indication: Therapeutic procedure
     Route: 065
  6. ISOFLURANE [Suspect]
     Active Substance: ISOFLURANE
     Indication: Status epilepticus
  7. KETAMINE HYDROCHLORIDE [Suspect]
     Active Substance: KETAMINE HYDROCHLORIDE
     Indication: Status epilepticus
     Route: 065
  8. KETAMINE HYDROCHLORIDE [Suspect]
     Active Substance: KETAMINE HYDROCHLORIDE
     Indication: Therapeutic procedure
     Route: 065
  9. LEVETIRACETAM [Suspect]
     Active Substance: LEVETIRACETAM
     Indication: Status epilepticus
     Route: 065
  10. MIDAZOLAM [Suspect]
     Active Substance: MIDAZOLAM
     Indication: Status epilepticus
     Route: 065
  11. MIDAZOLAM [Suspect]
     Active Substance: MIDAZOLAM
     Indication: Therapeutic procedure
     Route: 065
  12. MIDAZOLAM [Suspect]
     Active Substance: MIDAZOLAM
     Indication: Status epilepticus
  13. METHYLPREDNISOLONE [Suspect]
     Active Substance: METHYLPREDNISOLONE
     Indication: Status epilepticus
     Route: 042
  14. PHENOBARBITAL [Suspect]
     Active Substance: PHENOBARBITAL
     Indication: Status epilepticus
     Dosage: 150 MG, BID
     Route: 065
  15. PHENOBARBITAL [Suspect]
     Active Substance: PHENOBARBITAL
     Indication: Therapeutic procedure
  16. PHENYTOIN [Suspect]
     Active Substance: PHENYTOIN
     Indication: Status epilepticus
     Route: 065
  17. PHENYTOIN [Suspect]
     Active Substance: PHENYTOIN
     Indication: Seizure
  18. VALPROIC ACID [Suspect]
     Active Substance: VALPROIC ACID
     Indication: Status epilepticus
     Route: 065
  19. LEVETIRACETAM [Concomitant]
     Active Substance: LEVETIRACETAM
     Indication: Therapeutic procedure
     Route: 065
  20. PHENOBARBITAL [Concomitant]
     Active Substance: PHENOBARBITAL
     Indication: Therapeutic procedure
     Dosage: 150 MG, BID, OROPHARINGEAL
     Route: 065
  21. PHENYTOIN [Concomitant]
     Active Substance: PHENYTOIN
     Indication: Therapeutic procedure
     Route: 065
  22. PHENYTOIN [Concomitant]
     Active Substance: PHENYTOIN
     Indication: Seizure
  23. PIPERACILLIN AND TAZOBACTAM [Concomitant]
     Active Substance: PIPERACILLIN SODIUM\TAZOBACTAM SODIUM
     Indication: Appendicitis
     Route: 065
  24. VALPROIC ACID [Concomitant]
     Active Substance: VALPROIC ACID
     Indication: Therapeutic procedure
     Route: 065

REACTIONS (8)
  - Vomiting [Unknown]
  - Abdominal distension [Unknown]
  - Intra-abdominal pressure increased [Unknown]
  - Systemic inflammatory response syndrome [Unknown]
  - Necrosis ischaemic [Unknown]
  - Intestinal perforation [Unknown]
  - Hypertrophic cardiomyopathy [Unknown]
  - Intestinal ischaemia [Unknown]
